FAERS Safety Report 7991631-0 (Version None)
Quarter: 2011Q4

REPORT INFORMATION
  Report Type: 
  Country: None (occurrence: None)
  Receive Date: 20111219
  Receipt Date: 20111205
  Transmission Date: 20120403
  Serious: Yes (Other)
  Sender: FDA-Public Use
  Company Number: PHHO2011GB019462

PATIENT
  Sex: Male
  Weight: 53.95 kg

DRUGS (6)
  1. LDE 225 [Suspect]
     Indication: MEDULLOBLASTOMA
     Dosage: 650 MG, QD
     Route: 048
     Dates: start: 20111101
  2. AMITRIPTYLINE HCL [Suspect]
     Indication: PAIN
     Dosage: 10 MG, QD
     Dates: start: 20111101
  3. GABAPENTIN [Concomitant]
     Indication: PAIN
     Dosage: 300/300/600MG
     Dates: start: 20111101
  4. MORPHINE SULFATE [Concomitant]
     Indication: PAIN
     Dosage: 150 MG, PRN
     Dates: start: 20111101
  5. MIDAZOLAM [Concomitant]
     Indication: ANXIETY
     Dosage: 2.5 MG, PRN
     Dates: start: 20111101
  6. OXYBUTYNIN [Concomitant]
     Indication: BLADDER SPASM
     Dosage: 8 MG, BID
     Dates: start: 20111101

REACTIONS (2)
  - SUICIDAL IDEATION [None]
  - PAIN [None]
